FAERS Safety Report 11751321 (Version 2)
Quarter: 2015Q4

REPORT INFORMATION
  Report Type: Spontaneous
  Country: US (occurrence: US)
  Receive Date: 20151118
  Receipt Date: 20151228
  Transmission Date: 20160304
  Serious: Yes (Other)
  Sender: FDA-Public Use
  Company Number: US-BAYER-2015-465069

PATIENT
  Age: 75 Year
  Sex: Female
  Weight: 88.44 kg

DRUGS (15)
  1. ISOSORBIDE. [Concomitant]
     Active Substance: ISOSORBIDE
  2. TRAMADOL. [Concomitant]
     Active Substance: TRAMADOL
  3. SENOKOT [Concomitant]
     Active Substance: SENNOSIDES
  4. VITAMIN D [Concomitant]
     Active Substance: CHOLECALCIFEROL
  5. LASIX [Concomitant]
     Active Substance: FUROSEMIDE
  6. GABAPENTIN. [Concomitant]
     Active Substance: GABAPENTIN
  7. SYMBICORT [Concomitant]
     Active Substance: BUDESONIDE\FORMOTEROL FUMARATE DIHYDRATE
  8. CHOLESTEROL [Concomitant]
     Active Substance: CHOLESTEROL
  9. IRON [Concomitant]
     Active Substance: IRON
  10. BAYER LOW DOSE [Suspect]
     Active Substance: ASPIRIN
     Indication: ANTIPLATELET THERAPY
     Dosage: UNK UNK, BID
  11. VITAMIN C [Concomitant]
     Active Substance: ASCORBIC ACID
  12. XANAX [Concomitant]
     Active Substance: ALPRAZOLAM
  13. SPIRIVA [Concomitant]
     Active Substance: TIOTROPIUM BROMIDE MONOHYDRATE
  14. FISH OIL [Concomitant]
     Active Substance: FISH OIL
  15. ALBUTEROL. [Concomitant]
     Active Substance: ALBUTEROL

REACTIONS (3)
  - Product use issue [None]
  - Purpura [Not Recovered/Not Resolved]
  - Off label use [None]
